FAERS Safety Report 4508245-7 (Version None)
Quarter: 2004Q4

REPORT INFORMATION
  Report Type: 
  Country: None (occurrence: None)
  Receive Date: 20041123
  Receipt Date: 20031202
  Transmission Date: 20050328
  Serious: No
  Sender: FDA-Public Use
  Company Number: US-GLAXOSMITHKLINE-A0441649A

PATIENT
  Age: 38 Year
  Sex: Female

DRUGS (4)
  1. WELLBUTRIN [Suspect]
     Indication: DEPRESSION
     Dosage: 150MG TWICE PER DAY
     Route: 048
     Dates: start: 20030917
  2. BEXTRA [Concomitant]
     Indication: ARTHRITIS
     Dosage: 10MG PER DAY
     Route: 048
     Dates: start: 20030922
  3. NEXIUM [Concomitant]
     Dosage: 20MG PER DAY
     Route: 048
     Dates: start: 20030916
  4. MICROGESTIN FE [Concomitant]
     Indication: ORAL CONTRACEPTION
     Dosage: 1TAB PER DAY
     Route: 048
     Dates: start: 20030112

REACTIONS (2)
  - PHARMACEUTICAL PRODUCT COMPLAINT [None]
  - RASH [None]
